FAERS Safety Report 8153526-1 (Version None)
Quarter: 2012Q1

REPORT INFORMATION
  Report Type: 
  Country: None (occurrence: None)
  Receive Date: 20120221
  Receipt Date: 20120215
  Transmission Date: 20120608
  Serious: No
  Sender: FDA-Public Use
  Company Number: US-PFIZER INC-2012041764

PATIENT
  Sex: Female

DRUGS (3)
  1. TROSPIUM CHLORIDE [Suspect]
     Indication: HYPERTONIC BLADDER
     Dosage: UNK, DAILY
     Dates: start: 20110401, end: 20120101
  2. VESICARE [Suspect]
     Indication: HYPERTONIC BLADDER
     Dosage: UNK
  3. TOVIAZ [Suspect]
     Indication: HYPERTONIC BLADDER
     Dosage: UNK

REACTIONS (2)
  - DRUG INEFFECTIVE [None]
  - CONSTIPATION [None]
